FAERS Safety Report 6730144-0 (Version None)
Quarter: 2010Q2

REPORT INFORMATION
  Report Type: 
  Country: None (occurrence: None)
  Receive Date: 20100513
  Receipt Date: 20100505
  Transmission Date: 20101027
  Serious: Yes (Death, Hospitalization)
  Sender: FDA-Public Use
  Company Number: 99372

PATIENT
  Age: 57 Year
  Sex: Male
  Weight: 67 kg

DRUGS (1)
  1. LEUCOVORIN CALCIUM FOR INJ. [Suspect]
     Indication: COLORECTAL CANCER METASTATIC
     Dosage: 660MG IV
     Route: 042
     Dates: start: 20090722, end: 20100310

REACTIONS (5)
  - CHEST PAIN [None]
  - LUNG ADENOCARCINOMA [None]
  - LYMPHADENOPATHY [None]
  - PNEUMONITIS [None]
  - PRODUCTIVE COUGH [None]
